FAERS Safety Report 18560425 (Version 1)
Quarter: 2020Q4

REPORT INFORMATION
  Report Type: Report from Study
  Country: US (occurrence: US)
  Receive Date: 20201130
  Receipt Date: 20201130
  Transmission Date: 20210114
  Serious: Yes (Other)
  Sender: FDA-Public Use
  Company Number: US-PFIZER INC-2020459329

PATIENT
  Age: 71 Year
  Sex: Female

DRUGS (3)
  1. PAMIDRONATE DISODIUM. [Suspect]
     Active Substance: PAMIDRONATE DISODIUM
     Dosage: 50 MG (HIGH DOSE, FOR A WEEK ON ALTERNATE WEEKS FOR A TOTAL OF 4 WEEKS OF INFUSION)
     Route: 042
     Dates: start: 199907
  2. THALIDOMIDE [Concomitant]
     Active Substance: THALIDOMIDE
     Dosage: UNK
     Dates: start: 199907
  3. PAMIDRONATE DISODIUM. [Suspect]
     Active Substance: PAMIDRONATE DISODIUM
     Dosage: 50 MG, MONTHLY  (ONCE A MONTH AS MAINTENANCE)
     Route: 042
     Dates: start: 199907

REACTIONS (1)
  - Glomerulonephritis minimal lesion [Unknown]
